FAERS Safety Report 7113745-X (Version None)
Quarter: 2010Q4

REPORT INFORMATION
  Report Type: 
  Country: None (occurrence: None)
  Receive Date: 20101119
  Receipt Date: 20101105
  Transmission Date: 20110411
  Serious: Yes (Other)
  Sender: FDA-Public Use
  Company Number: US-PFIZER INC-2010148181

PATIENT
  Age: 20 Year
  Sex: Female

DRUGS (1)
  1. GEODON [Suspect]

REACTIONS (3)
  - HYPOAESTHESIA ORAL [None]
  - MENTAL IMPAIRMENT [None]
  - MUSCLE TWITCHING [None]
